FAERS Safety Report 6415789-X (Version None)
Quarter: 2009Q4

REPORT INFORMATION
  Report Type: 
  Country: None (occurrence: None)
  Receive Date: 20091027
  Receipt Date: 20091015
  Transmission Date: 20100525
  Serious: Yes (Death, Other)
  Sender: FDA-Public Use
  Company Number: JP-PFIZER INC-2009284146

PATIENT
  Age: 68 Year

DRUGS (2)
  1. HEPARIN SODIUM [Suspect]
  2. FUROSEMIDE [Concomitant]

REACTIONS (3)
  - CARDIAC FAILURE [None]
  - EMBOLISM [None]
  - HEPARIN-INDUCED THROMBOCYTOPENIA [None]
